FAERS Safety Report 7562910-6 (Version None)
Quarter: 2011Q2

REPORT INFORMATION
  Report Type: 
  Country: None (occurrence: None)
  Receive Date: 20110621
  Receipt Date: 20110621
  Transmission Date: 20111010
  Serious: Yes (Death)
  Sender: FDA-Public Use
  Company Number: None

PATIENT
  Age: 55 Year
  Sex: Male
  Weight: 50 kg

DRUGS (1)
  1. DOFETILIDE [Suspect]
     Indication: ATRIAL FIBRILLATION
     Dosage: 500 MCG BID PO
     Route: 048
     Dates: start: 20110314, end: 20110606

REACTIONS (2)
  - TACHYCARDIA [None]
  - RESPIRATORY DEPRESSION [None]
